FAERS Safety Report 6661679-7 (Version None)
Quarter: 2010Q1

REPORT INFORMATION
  Report Type: 
  Country: None (occurrence: None)
  Receive Date: 20100331
  Receipt Date: 20090423
  Transmission Date: 20100710
  Serious: Yes (Hospitalization)
  Sender: FDA-Public Use
  Company Number: US-BRISTOL-MYERS SQUIBB COMPANY-14584619

PATIENT
  Age: 57 Year
  Sex: Female

DRUGS (6)
  1. ERBITUX [Suspect]
     Indication: COLON CANCER METASTATIC
     Dosage: THEREAFTER 250 MG/M2 WEEKLY
     Dates: start: 20090310, end: 20090310
  2. LIPITOR [Concomitant]
  3. ZETIA [Concomitant]
  4. TOPROL-XL [Concomitant]
  5. GABAPENTIN [Concomitant]
  6. CYMBALTA [Concomitant]

REACTIONS (1)
  - LUNG INFILTRATION [None]
